FAERS Safety Report 24685807 (Version 1)
Quarter: 2024Q4

REPORT INFORMATION
  Report Type: Spontaneous
  Country: US (occurrence: None)
  Receive Date: 20241129
  Receipt Date: 20241129
  Transmission Date: 20250115
  Serious: Yes (Hospitalization)
  Sender: Public
  Company Number: None

PATIENT
  Age: 4 Month
  Sex: Female

DRUGS (2)
  1. PULMOZYME [Suspect]
     Active Substance: DORNASE ALFA
     Indication: Cystic fibrosis
     Dosage: FREQUENCY : DAILY;?
     Route: 055
     Dates: start: 20240906
  2. TOBRAMYCIN [Concomitant]

REACTIONS (6)
  - Vomiting [None]
  - Cough [None]
  - Hypophagia [None]
  - Dyspepsia [None]
  - Infection [None]
  - Dyspnoea [None]

NARRATIVE: CASE EVENT DATE: 20241030
